FAERS Safety Report 5733051-5 (Version None)
Quarter: 2008Q2

REPORT INFORMATION
  Report Type: 
  Country: None (occurrence: None)
  Receive Date: 20080509
  Receipt Date: 20080502
  Transmission Date: 20081010
  Serious: Yes (Other)
  Sender: FDA-Public Use
  Company Number: US-ASTRAZENECA-2008UW09086

PATIENT
  Age: 42 Year
  Sex: Female

DRUGS (1)
  1. SEROQUEL [Suspect]
     Indication: BIPOLAR II DISORDER
     Dosage: 25 MG TO 200 MG
     Route: 048
     Dates: start: 20070801

REACTIONS (7)
  - BLOOD TRIGLYCERIDES INCREASED [None]
  - BULIMIA NERVOSA [None]
  - CLUMSINESS [None]
  - DEPRESSION [None]
  - HYPERTENSION [None]
  - JOINT SPRAIN [None]
  - WEIGHT INCREASED [None]
